FAERS Safety Report 9789676 (Version 1)
Quarter: 2013Q4

REPORT INFORMATION
  Report Type: Spontaneous
  Country: US (occurrence: None)
  Receive Date: 20131227
  Receipt Date: 20131227
  Transmission Date: 20140711
  Serious: Yes (Death)
  Sender: FDA-Public Use
  Company Number: 2092249

PATIENT
  Age: 11 Year
  Sex: Female

DRUGS (11)
  1. KETAMINE HYDROCHLORIDE [Suspect]
     Indication: ENDOTRACHEAL INTUBATION
  2. ISOTONIC [Concomitant]
  3. HYDROCORTISONE [Concomitant]
  4. CEFOTAXIME [Concomitant]
  5. VANCOMYCIN [Concomitant]
  6. IBUPROFEN [Concomitant]
  7. THYROXINE [Concomitant]
  8. HORMONES [Concomitant]
  9. DOPAMINE [Concomitant]
  10. NOREPINEPHRINE [Concomitant]
  11. ROCURONIUM [Concomitant]

REACTIONS (3)
  - Cardiac arrest [None]
  - Shock [None]
  - Vasodilatation [None]
